FAERS Safety Report 13861891 (Version 1)
Quarter: 2017Q3

REPORT INFORMATION
  Report Type: Spontaneous
  Country: BR (occurrence: AU)
  Receive Date: 20170811
  Receipt Date: 20170811
  Transmission Date: 20171127
  Serious: Yes (Other)
  Sender: FDA-Public Use
  Company Number: PHHY2016AU183896

PATIENT
  Sex: Female

DRUGS (1)
  1. TRAMADOL SANDOZ [Suspect]
     Active Substance: TRAMADOL
     Indication: GASTROINTESTINAL PAIN
     Dosage: 50 MG, UNK
     Route: 065

REACTIONS (2)
  - Drug ineffective [Unknown]
  - Intentional product misuse [Unknown]
